FAERS Safety Report 7497466-X (Version None)
Quarter: 2011Q2

REPORT INFORMATION
  Report Type: 
  Country: None (occurrence: None)
  Receive Date: 20110523
  Receipt Date: 20110510
  Transmission Date: 20111010
  Serious: Yes (Hospitalization)
  Sender: FDA-Public Use
  Company Number: US-ELI_LILLY_AND_COMPANY-US201011001513

PATIENT
  Sex: Female

DRUGS (2)
  1. FORTEO [Suspect]
     Indication: OSTEOPOROSIS
     Dosage: 20 UG, QD
     Dates: start: 20100701
  2. FORTEO [Suspect]
     Dosage: 20 UG, QD

REACTIONS (5)
  - OEDEMA PERIPHERAL [None]
  - INJECTION SITE PAIN [None]
  - MUSCLE SPASMS [None]
  - BONE PAIN [None]
  - INCORRECT ROUTE OF DRUG ADMINISTRATION [None]
